FAERS Safety Report 7368050-3 (Version None)
Quarter: 2011Q1

REPORT INFORMATION
  Report Type: 
  Country: None (occurrence: None)
  Receive Date: 20110323
  Receipt Date: 20110314
  Transmission Date: 20110831
  Serious: Yes (Hospitalization)
  Sender: FDA-Public Use
  Company Number: US-BIOGENIDEC-2010BI040134

PATIENT
  Age: 48 Year
  Sex: Female

DRUGS (1)
  1. TYSABRI [Suspect]
     Indication: MULTIPLE SCLEROSIS
     Route: 042
     Dates: start: 20090311

REACTIONS (7)
  - NEPHROLITHIASIS [None]
  - DEHYDRATION [None]
  - MUSCULAR WEAKNESS [None]
  - KIDNEY INFECTION [None]
  - FALL [None]
  - CYSTITIS [None]
  - CONFUSIONAL STATE [None]
